FAERS Safety Report 5405097-8 (Version None)
Quarter: 2007Q3

REPORT INFORMATION
  Report Type: 
  Country: None (occurrence: None)
  Receive Date: 20070803
  Receipt Date: 20070725
  Transmission Date: 20080115
  Serious: Yes (Hospitalization)
  Sender: FDA-Public Use
  Company Number: US-ROCHE-508736

PATIENT
  Age: 54 Year
  Sex: Male

DRUGS (2)
  1. PEGASYS [Suspect]
     Route: 065
     Dates: start: 20061027, end: 20070501
  2. RIBAVIRIN [Suspect]
     Route: 065
     Dates: start: 20061027, end: 20070501

REACTIONS (7)
  - AMMONIA INCREASED [None]
  - CELLULITIS [None]
  - FULL BLOOD COUNT DECREASED [None]
  - HALLUCINATION [None]
  - INFLUENZA LIKE ILLNESS [None]
  - PSYCHOTIC DISORDER [None]
  - RENAL FAILURE [None]
